FAERS Safety Report 4734169-6 (Version None)
Quarter: 2005Q3

REPORT INFORMATION
  Report Type: 
  Country: None (occurrence: None)
  Receive Date: 20050729
  Receipt Date: 20050720
  Transmission Date: 20060218
  Serious: Yes (Other)
  Sender: FDA-Public Use
  Company Number: COV2-2005-00155

PATIENT
  Age: 51 Year
  Sex: Female

DRUGS (12)
  1. FOSRENOL [Suspect]
     Indication: HYPERPHOSPHATAEMIA
     Dosage: 500 MG, 3X/DAY;TID, ORAL
     Route: 048
     Dates: start: 20050708, end: 20050715
  2. ALLOPURINOL [Concomitant]
  3. NORVASC [Concomitant]
  4. COUMADIN     BOOTS      (WARFARIN SODUM) TABLET [Concomitant]
  5. DILANTIN [Concomitant]
  6. DOCUSATE SODIUM W/SENNA (DOCUSATE SODIUM, SENNA ALEXANDRINA) CAPSULE [Concomitant]
  7. NEURONTIN [Concomitant]
  8. METOPROLOL TARTRATE [Concomitant]
  9. NEPHRO-VITE RX (ASCORBIC ACID, FOLIC ACID, VITAMIN B NOS) TABLET [Concomitant]
  10. RENAGEL [Concomitant]
  11. SENSIPAR TABLET [Concomitant]
  12. SODIUM BICARBONATE (SODIUM BICARBONATE) TABLET [Concomitant]

REACTIONS (1)
  - DIARRHOEA [None]
